FAERS Safety Report 25020841 (Version 2)
Quarter: 2025Q1

REPORT INFORMATION
  Report Type: Report from Study
  Country: NL (occurrence: NL)
  Receive Date: 20250227
  Receipt Date: 20250305
  Transmission Date: 20250409
  Serious: Yes (Death)
  Sender: ABBVIE
  Company Number: NL-ABBVIE-6153707

PATIENT
  Age: 68 Year
  Sex: Male

DRUGS (12)
  1. CARBIDOPA\LEVODOPA [Suspect]
     Active Substance: CARBIDOPA\LEVODOPA
     Indication: Parkinson^s disease
     Route: 050
     Dates: start: 20241011
  2. CARBIDOPA\LEVODOPA [Suspect]
     Active Substance: CARBIDOPA\LEVODOPA
     Route: 050
     Dates: start: 20250129, end: 20250131
  3. CARBIDOPA\LEVODOPA [Suspect]
     Active Substance: CARBIDOPA\LEVODOPA
     Route: 050
     Dates: start: 20250131, end: 20250204
  4. CARBIDOPA\LEVODOPA [Suspect]
     Active Substance: CARBIDOPA\LEVODOPA
     Route: 050
     Dates: start: 20250204, end: 20250212
  5. RIVASTIGMINE [Concomitant]
     Active Substance: RIVASTIGMINE
     Indication: Hallucination
     Dosage: 4.6 MG/24 HOURS
  6. BENSERAZIDE HYDROCHLORIDE\LEVODOPA [Concomitant]
     Active Substance: BENSERAZIDE HYDROCHLORIDE\LEVODOPA
     Indication: Parkinson^s disease
     Route: 048
  7. ROTIGOTINE [Concomitant]
     Active Substance: ROTIGOTINE
     Indication: Parkinson^s disease
     Dosage: 6MG/24HOURS
  8. MIRTAZAPINE [Concomitant]
     Active Substance: MIRTAZAPINE
     Indication: Depression
     Dosage: DISPERSIBLE TABLET, ?1 AN
     Route: 048
  9. SINEMET [Concomitant]
     Active Substance: CARBIDOPA\LEVODOPA
     Indication: Product used for unknown indication
     Route: 048
  10. CLONAZEPAM [Concomitant]
     Active Substance: CLONAZEPAM
     Indication: Anxiety
     Dosage: 0.5 MG IN
     Route: 048
  11. CLOZAPINE [Concomitant]
     Active Substance: CLOZAPINE
     Indication: Hallucination
     Dosage: 18.75 MG IN
     Route: 048
  12. MOVICOLON [Concomitant]
     Active Substance: POLYETHYLENE GLYCOL 3350\POTASSIUM CHLORIDE\SODIUM BICARBONATE\SODIUM CHLORIDE
     Indication: Constipation
     Dosage: POWDER FOR DRINK,?MACROGOL/ELECTROLYTES NATURAL
     Route: 048

REACTIONS (1)
  - Pneumonia [Fatal]
